FAERS Safety Report 11727740 (Version 3)
Quarter: 2017Q4

REPORT INFORMATION
  Report Type: Report from Study
  Country: US (occurrence: US)
  Receive Date: 20151112
  Receipt Date: 20171206
  Transmission Date: 20180320
  Serious: Yes (Death, Hospitalization)
  Sender: FDA-Public Use
  Company Number: US-ACTELION-A-NJ2015-126866

PATIENT
  Age: 78 Year
  Sex: Male

DRUGS (13)
  1. VITAMIN D3 [Concomitant]
     Active Substance: CHOLECALCIFEROL
  2. MOBIC [Concomitant]
     Active Substance: MELOXICAM
  3. VALCHLOR [Suspect]
     Active Substance: MECHLORETHAMINE
     Indication: MYCOSIS FUNGOIDES
     Dosage: UNK, QOD SPOT TREATMENT
     Route: 061
     Dates: start: 20141208
  4. NIASPAN [Concomitant]
     Active Substance: NIACIN
  5. TRIAMCINOLONE [Concomitant]
     Active Substance: TRIAMCINOLONE
  6. FLECAINIDE [Concomitant]
     Active Substance: FLECAINIDE
  7. MIRTAZAPINE. [Concomitant]
     Active Substance: MIRTAZAPINE
  8. MAGNESIUM [Concomitant]
     Active Substance: MAGNESIUM
  9. TARGRETIN [Concomitant]
     Active Substance: BEXAROTENE
     Dosage: 225 NG, QD
     Route: 048
     Dates: start: 201412
  10. SILVADENE [Concomitant]
     Active Substance: SILVER SULFADIAZINE
  11. LIPITOR [Concomitant]
     Active Substance: ATORVASTATIN CALCIUM
  12. METOPROLOL. [Concomitant]
     Active Substance: METOPROLOL
  13. LEVOTHYROXINE. [Concomitant]
     Active Substance: LEVOTHYROXINE

REACTIONS (8)
  - Cognitive disorder [Fatal]
  - Hyponatraemia [Fatal]
  - Fall [Unknown]
  - Hip fracture [Unknown]
  - Bone marrow failure [Fatal]
  - Haemoglobin decreased [Unknown]
  - Electrolyte imbalance [Fatal]
  - Encephalopathy [Fatal]
